FAERS Safety Report 16839617 (Version 1)
Quarter: 2019Q3

REPORT INFORMATION
  Report Type: Spontaneous
  Country: US (occurrence: US)
  Receive Date: 20190731
  Receipt Date: 20190731
  Transmission Date: 20191005
  Serious: Yes (Life-Threatening, Hospitalization)
  Sender: FDA-Public Use
  Company Number: None

PATIENT
  Sex: Male

DRUGS (2)
  1. AMITRIPTYLINE [Suspect]
     Active Substance: AMITRIPTYLINE
     Indication: SLEEP DISORDER
     Route: 048
     Dates: start: 20190424, end: 20190528
  2. AMPHETAMINE/DEXTROAMPHETAMINE [Suspect]
     Active Substance: AMPHETAMINE\DEXTROAMPHETAMINE
     Indication: ATTENTION DEFICIT/HYPERACTIVITY DISORDER
     Route: 048
     Dates: start: 20101208, end: 20190528

REACTIONS (4)
  - Suicide attempt [None]
  - Mania [None]
  - Depression [None]
  - Insomnia [None]

NARRATIVE: CASE EVENT DATE: 20190529
